FAERS Safety Report 22208262 (Version 3)
Quarter: 2024Q3

REPORT INFORMATION
  Report Type: Report from Study
  Country: IT (occurrence: IT)
  Receive Date: 20230413
  Receipt Date: 20240715
  Transmission Date: 20241017
  Serious: Yes (Other)
  Sender: TEVA
  Company Number: None

PATIENT
  Age: 7 Year
  Sex: Female
  Weight: 25 kg

DRUGS (2)
  1. VINCRISTINE [Suspect]
     Active Substance: VINCRISTINE
     Indication: Nephroblastoma
     Dosage: VINCRISTINA TEVA ITALIA, 1.35 MG/DAY ON 02/24/23 AND 03/03/23
     Route: 042
     Dates: start: 20230224, end: 20230303
  2. IRINOTECAN [Suspect]
     Active Substance: IRINOTECAN
     Indication: Nephroblastoma
     Route: 042
     Dates: start: 20230224, end: 20230307

REACTIONS (4)
  - Neutropenia [Recovered/Resolved]
  - Vomiting [Recovered/Resolved]
  - Cancer fatigue [Recovered/Resolved]
  - Pancytopenia [Recovered/Resolved]

NARRATIVE: CASE EVENT DATE: 20230307
